FAERS Safety Report 21595665 (Version 1)
Quarter: 2022Q4

REPORT INFORMATION
  Report Type: Report from Study
  Country: US (occurrence: US)
  Receive Date: 20221115
  Receipt Date: 20221115
  Transmission Date: 20230112
  Serious: Yes (Hospitalization, Other)
  Sender: FDA-Public Use
  Company Number: US-GILEAD-2022-0604738

PATIENT
  Age: 33 Year
  Sex: Female

DRUGS (13)
  1. AZTREONAM LYSINE [Suspect]
     Active Substance: AZTREONAM LYSINE
     Indication: Cystic fibrosis
     Dosage: 75 MG, TID, 28 DAYS ON, 28 DAYS OFF
     Route: 055
     Dates: start: 20140514
  2. AZITHROMYCIN [Concomitant]
     Active Substance: AZITHROMYCIN
  3. LEVEMIR [Concomitant]
     Active Substance: INSULIN DETEMIR
  4. LIPITOR [Concomitant]
     Active Substance: ATORVASTATIN CALCIUM
  5. LOESTRIN NOS [Concomitant]
     Active Substance: ETHINYL ESTRADIOL\NORETHINDRONE ACETATE
  6. NOVOLOG [Concomitant]
     Active Substance: INSULIN ASPART
  7. PAROXETINE [Concomitant]
     Active Substance: PAROXETINE
  8. PREVIDENT [Concomitant]
     Active Substance: SODIUM FLUORIDE
  9. PULMOZYME [Concomitant]
     Active Substance: DORNASE ALFA
  10. SEMGLEE [INSULIN GLARGINE] [Concomitant]
  11. SINGULAIR [Concomitant]
     Active Substance: MONTELUKAST SODIUM
  12. TRAZODONE [Concomitant]
     Active Substance: TRAZODONE HYDROCHLORIDE
  13. VITAMIN D3 [Concomitant]
     Active Substance: CHOLECALCIFEROL

REACTIONS (1)
  - Pneumonia [Unknown]
